FAERS Safety Report 8884605 (Version 2)
Quarter: 2012Q4

REPORT INFORMATION
  Report Type: 
  Country: US (occurrence: US)
  Receive Date: 20121102
  Receipt Date: 20121109
  Transmission Date: 20130627
  Serious: Yes (Other)
  Sender: FDA-Public Use
  Company Number: PHHY2012US097678

PATIENT
  Age: 50 Year
  Sex: Female

DRUGS (2)
  1. NILOTINIB [Suspect]
     Indication: CHRONIC MYELOID LEUKAEMIA
     Dosage: 400 mg, BID
     Dates: start: 200805
  2. NILOTINIB [Suspect]
     Dosage: 400 mg, BID
     Dates: start: 200805

REACTIONS (10)
  - Cerebrovascular accident [Unknown]
  - Vasospasm [Unknown]
  - Dysarthria [Unknown]
  - Speech disorder [Unknown]
  - Asthenia [Unknown]
  - Amnesia [Unknown]
  - Disturbance in attention [Unknown]
  - Confusional state [Unknown]
  - Fatigue [Unknown]
  - Disorientation [Unknown]
